FAERS Safety Report 5125663-7 (Version None)
Quarter: 2006Q4

REPORT INFORMATION
  Report Type: 
  Country: None (occurrence: None)
  Receive Date: 20061010
  Receipt Date: 20061010
  Transmission Date: 20070319
  Serious: Yes (Other)
  Sender: FDA-Public Use
  Company Number: None

PATIENT
  Age: 22 Year
  Sex: Female
  Weight: 72.5755 kg

DRUGS (2)
  1. TRAMADOL HCL [Suspect]
     Indication: EAR INFECTION
     Dosage: 1 OR 2 TABLETS    4 - 6 HOURS   PO  (1 50 MG TAKEN ONLY 1 TIME)
     Route: 048
     Dates: start: 20061006, end: 20061006
  2. TRAMADOL HCL [Suspect]
     Indication: EAR PAIN
     Dosage: 1 OR 2 TABLETS    4 - 6 HOURS   PO  (1 50 MG TAKEN ONLY 1 TIME)
     Route: 048
     Dates: start: 20061006, end: 20061006

REACTIONS (8)
  - ABNORMAL BEHAVIOUR [None]
  - DIZZINESS [None]
  - DYSPNOEA [None]
  - EUPHORIC MOOD [None]
  - HEART RATE INCREASED [None]
  - IMPAIRED DRIVING ABILITY [None]
  - INSOMNIA [None]
  - POSTURE ABNORMAL [None]
